FAERS Safety Report 24401780 (Version 1)
Quarter: 2024Q4

REPORT INFORMATION
  Report Type: Spontaneous
  Country: US (occurrence: US)
  Receive Date: 20241007
  Receipt Date: 20241007
  Transmission Date: 20250114
  Serious: No
  Sender: RANBAXY
  Company Number: US-SUN PHARMACEUTICAL INDUSTRIES LTD-2023R1-409175

PATIENT
  Sex: Female

DRUGS (2)
  1. CEQUA [Suspect]
     Active Substance: CYCLOSPORINE
     Indication: Dry eye
     Dosage: UNK
     Route: 047
  2. CEQUA [Suspect]
     Active Substance: CYCLOSPORINE
     Indication: Eye pain

REACTIONS (4)
  - Condition aggravated [Unknown]
  - Eye swelling [Unknown]
  - Pain [Unknown]
  - Discomfort [Unknown]
